FAERS Safety Report 9198682 (Version 2)
Quarter: 2013Q2

REPORT INFORMATION
  Report Type: Spontaneous
  Country: DK (occurrence: DK)
  Receive Date: 20130329
  Receipt Date: 20130417
  Transmission Date: 20140414
  Serious: Yes (Death, Hospitalization)
  Sender: FDA-Public Use
  Company Number: DK-PFIZER INC-2013100637

PATIENT
  Age: 76 Year
  Sex: Male

DRUGS (8)
  1. CORDARONE [Suspect]
     Indication: VENTRICULAR TACHYCARDIA
     Dosage: 1 DOSAGE FORM;DAILY
     Route: 048
     Dates: start: 201203
  2. SIMVASTATIN [Concomitant]
     Dosage: UNK
  3. RAMIPRIL [Concomitant]
     Dosage: UNK
  4. MAGNYL ^SAD^ [Concomitant]
     Dosage: UNK
  5. IMDUR [Concomitant]
     Dosage: UNK
  6. OMNIC [Concomitant]
     Dosage: UNK
  7. SELOZOK [Concomitant]
     Dosage: UNK
  8. FINASTERIDE [Concomitant]
     Dosage: UNK

REACTIONS (9)
  - Pancreatitis acute [Fatal]
  - Multi-organ failure [Fatal]
  - Mental impairment [Fatal]
  - Cholestasis [Fatal]
  - Septic shock [Fatal]
  - Abdominal abscess [Fatal]
  - Melaena [Fatal]
  - Haematoma [Fatal]
  - Pneumonia [Unknown]
